FAERS Safety Report 11221415 (Version 2)
Quarter: 2015Q3

REPORT INFORMATION
  Report Type: Spontaneous
  Country: US (occurrence: US)
  Receive Date: 20150626
  Receipt Date: 20150723
  Transmission Date: 20151125
  Serious: Yes (Death)
  Sender: FDA-Public Use
  Company Number: US-ROCHE-1599003

PATIENT
  Age: 93 Year
  Sex: Male

DRUGS (18)
  1. ALFUZOSIN [Concomitant]
     Active Substance: ALFUZOSIN
  2. KETOCONAZOLE. [Concomitant]
     Active Substance: KETOCONAZOLE
  3. CEPHALEXIN. [Concomitant]
     Active Substance: CEPHALEXIN
  4. LUCENTIS [Suspect]
     Active Substance: RANIBIZUMAB
     Indication: MACULAR DEGENERATION
     Dosage: SOL 0.5MG 0.05ML
     Route: 065
     Dates: start: 20150101
  5. BENZONATATE. [Concomitant]
     Active Substance: BENZONATATE
  6. HYDROCORTISONE. [Concomitant]
     Active Substance: HYDROCORTISONE
  7. WARFARIN SODIUM. [Concomitant]
     Active Substance: WARFARIN SODIUM
  8. LOVASTATIN. [Concomitant]
     Active Substance: LOVASTATIN
  9. FLUOCINONIDE. [Concomitant]
     Active Substance: FLUOCINONIDE
  10. AZITHROMYCIN [Concomitant]
     Active Substance: AZITHROMYCIN ANHYDROUS
  11. DONEPEZIL. [Concomitant]
     Active Substance: DONEPEZIL
  12. CIPROFLOXACIN. [Concomitant]
     Active Substance: CIPROFLOXACIN
  13. AMPICILLIN [Concomitant]
     Active Substance: AMPICILLIN
  14. MUPIROCIN. [Concomitant]
     Active Substance: MUPIROCIN
  15. INVANZ [Concomitant]
     Active Substance: ERTAPENEM SODIUM
  16. NAMENDA [Concomitant]
     Active Substance: MEMANTINE HYDROCHLORIDE
  17. AVODART [Concomitant]
     Active Substance: DUTASTERIDE
  18. GLIPIZIDE. [Concomitant]
     Active Substance: GLIPIZIDE

REACTIONS (1)
  - Death [Fatal]

NARRATIVE: CASE EVENT DATE: 20150410
